FAERS Safety Report 7308592-X (Version None)
Quarter: 2011Q1

REPORT INFORMATION
  Report Type: 
  Country: None (occurrence: None)
  Receive Date: 20110210
  Receipt Date: 20110202
  Transmission Date: 20110831
  Serious: Yes (Hospitalization, Other)
  Sender: FDA-Public Use
  Company Number: TRP_07543_2011

PATIENT
  Sex: Female

DRUGS (2)
  1. RIBASPHERE [Suspect]
     Indication: HEPATITIS C
     Dates: end: 20101101
  2. PEG-INTRON [Suspect]
     Indication: HEPATITIS C
     Dates: end: 20101101

REACTIONS (14)
  - PNEUMONIA [None]
  - THYROID DISORDER [None]
  - ALOPECIA [None]
  - WEIGHT DECREASED [None]
  - MUSCULOSKELETAL CHEST PAIN [None]
  - WHITE BLOOD CELL COUNT DECREASED [None]
  - APHASIA [None]
  - TREMOR [None]
  - FATIGUE [None]
  - HAEMOGLOBIN DECREASED [None]
  - DISTURBANCE IN ATTENTION [None]
  - ARTHRALGIA [None]
  - LUNG ABSCESS [None]
  - MEMORY IMPAIRMENT [None]
